FAERS Safety Report 5125338-4 (Version None)
Quarter: 2006Q4

REPORT INFORMATION
  Report Type: 
  Country: None (occurrence: None)
  Receive Date: 20061006
  Receipt Date: 20060926
  Transmission Date: 20070319
  Serious: Yes (Death, Hospitalization)
  Sender: FDA-Public Use
  Company Number: 2006CT000713

PATIENT
  Age: 77 Year
  Sex: Female
  Weight: 96.5 kg

DRUGS (20)
  1. VENTAVIS [Suspect]
     Indication: PULMONARY HYPERTENSION
     Dosage: 5 UG; 6XD; INH
     Route: 055
     Dates: start: 20051001, end: 20060823
  2. TRACLEER [Concomitant]
  3. CHLORHEXIDINE [Concomitant]
  4. CLINDAMYCIN [Concomitant]
  5. ZYRTEC [Concomitant]
  6. RESTASIS [Concomitant]
  7. FLUOCINOLONE ACETONIDE [Concomitant]
  8. TYLENOL [Concomitant]
  9. VITAMIN E [Concomitant]
  10. OSCAL [Concomitant]
  11. NEXIUM [Concomitant]
  12. FERROUS SULFATE TAB [Concomitant]
  13. SPIRONOLACTONE [Concomitant]
  14. WARFARIN SODIUM [Concomitant]
  15. EVISTA [Concomitant]
  16. ASPIRIN [Concomitant]
  17. NIFEDIPINE [Concomitant]
  18. ATORVASTATIN CALCIUM [Concomitant]
  19. CENTRUM SILVER [Concomitant]
  20. OXYGEN [Concomitant]

REACTIONS (13)
  - ABDOMINAL PAIN [None]
  - CARDIO-RESPIRATORY ARREST [None]
  - CONDITION AGGRAVATED [None]
  - CREST SYNDROME [None]
  - ESCHERICHIA INFECTION [None]
  - INTESTINAL ISCHAEMIA [None]
  - MULTI-ORGAN FAILURE [None]
  - PNEUMONIA [None]
  - PULMONARY HYPERTENSION [None]
  - SCLERODERMA [None]
  - SEPSIS [None]
  - SPUTUM CULTURE POSITIVE [None]
  - STAPHYLOCOCCAL INFECTION [None]
